FAERS Safety Report 13101690 (Version 7)
Quarter: 2017Q3

REPORT INFORMATION
  Report Type: Spontaneous
  Country: KR (occurrence: KR)
  Receive Date: 20170110
  Receipt Date: 20170919
  Transmission Date: 20171127
  Serious: Yes (Death, Other)
  Sender: FDA-Public Use
  Company Number: KR-009507513-1701KOR003676

PATIENT
  Age: 64 Year
  Sex: Female
  Weight: 64 kg

DRUGS (47)
  1. EMEND (FOSAPREPITANT DIMEGLUMINE) [Suspect]
     Active Substance: FOSAPREPITANT DIMEGLUMINE
     Dosage: 150 MG, ONCE
     Route: 042
     Dates: start: 20160629, end: 20160629
  2. EMEND (FOSAPREPITANT DIMEGLUMINE) [Suspect]
     Active Substance: FOSAPREPITANT DIMEGLUMINE
     Dosage: 150 MG, ONCE
     Route: 042
     Dates: start: 20160801, end: 20160801
  3. PAN B COMP [Concomitant]
     Indication: ASTHENIA
     Dosage: 1 AMPULE, QD
     Route: 042
     Dates: start: 20160609, end: 20160610
  4. DEXAMETHASONE SODIUM PHOSPHATE. [Concomitant]
     Active Substance: DEXAMETHASONE SODIUM PHOSPHATE
     Dosage: 8 MG, BID; STRENGHT: 5MG/ML
     Route: 042
     Dates: start: 20160611, end: 20160612
  5. CIMETIDINE [Concomitant]
     Active Substance: CIMETIDINE
     Indication: PROPHYLAXIS
     Dosage: 1 AMPULE, ONCE; STRENGTH: 200MG/2ML
     Route: 042
     Dates: start: 20160615, end: 20160615
  6. VINORELBINE TARTRATE. [Concomitant]
     Active Substance: VINORELBINE TARTRATE
     Dosage: 30.7 MG, ONCE, CYCLE 3; STRENGTH: 50MG/5ML
     Route: 042
     Dates: start: 20160629, end: 20160629
  7. VINORELBINE TARTRATE. [Concomitant]
     Active Substance: VINORELBINE TARTRATE
     Dosage: 30.7 MG, ONCE, CYCLE 3; STRENGTH: 50MG/5ML
     Route: 042
     Dates: start: 20160705, end: 20160705
  8. VINORELBINE TARTRATE. [Concomitant]
     Active Substance: VINORELBINE TARTRATE
     Dosage: 30 MG, ONCE, CYCLE 4; STRENGTH: 50MG/5ML
     Route: 042
     Dates: start: 20160801, end: 20160801
  9. CISPLATIN. [Concomitant]
     Active Substance: CISPLATIN
     Dosage: 91 MG, ONCE, CYCLE 4; STRENGTH: 50MG/5ML;
     Route: 042
     Dates: start: 20160801, end: 20160801
  10. ALOXI [Concomitant]
     Active Substance: PALONOSETRON HYDROCHLORIDE
     Dosage: 5 ML, ONCE
     Route: 042
     Dates: start: 20160629, end: 20160629
  11. ALOXI [Concomitant]
     Active Substance: PALONOSETRON HYDROCHLORIDE
     Dosage: 5 ML, ONCE
     Route: 042
     Dates: start: 20160801, end: 20160801
  12. NORZYME [Concomitant]
     Indication: PROPHYLAXIS
     Dosage: 457.7 MG, TID
     Route: 048
     Dates: start: 2016
  13. CIMETIDINE [Concomitant]
     Active Substance: CIMETIDINE
     Dosage: 1 AMPULE, ONCE; STRENGTH: 200MG/2ML
     Route: 042
     Dates: start: 20160705, end: 20160705
  14. XARELTO [Concomitant]
     Active Substance: RIVAROXABAN
     Indication: PROPHYLAXIS
     Dosage: 20 MG, QD
     Route: 048
     Dates: start: 20160610
  15. NAVELBINE [Concomitant]
     Active Substance: VINORELBINE TARTRATE
     Indication: LUNG NEOPLASM MALIGNANT
     Dosage: 30.5 MG, ONCE, CYCLE 2; STRENGTH: 50MG/5ML
     Route: 042
     Dates: start: 20160615, end: 20160615
  16. DEXAMETHASONE SODIUM PHOSPHATE. [Concomitant]
     Active Substance: DEXAMETHASONE SODIUM PHOSPHATE
     Dosage: 12 MG, ONCE; STRENGHT: 5MG/ML
     Route: 042
     Dates: start: 20160801, end: 20160801
  17. DEXAMETHASONE. [Concomitant]
     Active Substance: DEXAMETHASONE
     Dosage: 8 MG, BID
     Route: 048
     Dates: start: 20160701, end: 20160702
  18. CIMETIDINE [Concomitant]
     Active Substance: CIMETIDINE
     Dosage: 1 AMPULE, ONCE; STRENGTH: 200MG/2ML
     Route: 042
     Dates: start: 20160629, end: 20160629
  19. ALMAGEL (ALMAGATE) [Concomitant]
     Indication: PROPHYLAXIS OF NAUSEA AND VOMITING
     Dosage: 1 PK, QID
     Route: 048
     Dates: start: 20160610, end: 20160623
  20. DEXAMETHASONE. [Concomitant]
     Active Substance: DEXAMETHASONE
     Indication: CHEMOTHERAPY
     Dosage: 8 MG, ONCE
     Route: 048
     Dates: start: 20160615, end: 20160615
  21. CIMETIDINE [Concomitant]
     Active Substance: CIMETIDINE
     Dosage: 1 AMPULE, ONCE; STRENGTH: 200MG/2ML
     Route: 042
     Dates: start: 20160808, end: 20160808
  22. ALANINE (+) ARGININE (+) CYSTEINE HYDROCHLORIDE (+) GLYCINE (+) HISTID [Concomitant]
     Dosage: 1 BLT, ONCE
     Route: 042
     Dates: start: 20160731, end: 20160731
  23. CIMET [Concomitant]
     Dosage: 1 TABLET, QD
     Route: 048
     Dates: start: 20160701, end: 20160702
  24. VINORELBINE TARTRATE. [Concomitant]
     Active Substance: VINORELBINE TARTRATE
     Dosage: 30 MG, ONCE, CYCLE 4; STRENGTH: 50MG/5ML
     Route: 042
     Dates: start: 20160808, end: 20160808
  25. DEXAMETHASONE SODIUM PHOSPHATE. [Concomitant]
     Active Substance: DEXAMETHASONE SODIUM PHOSPHATE
     Dosage: 8 MG, ONCE; STRENGHT: 5MG/ML
     Route: 042
     Dates: start: 20160802, end: 20160802
  26. DEXAMETHASONE SODIUM PHOSPHATE. [Concomitant]
     Active Substance: DEXAMETHASONE SODIUM PHOSPHATE
     Dosage: 8 MG, ONCE; STRENGHT: 5MG/ML
     Route: 042
     Dates: start: 20160705, end: 20160705
  27. CIMETIDINE [Concomitant]
     Active Substance: CIMETIDINE
     Dosage: 1 AMPULE, ONCE; STRENGTH: 200MG/2ML
     Route: 042
     Dates: start: 20160801, end: 20160801
  28. BONALING A [Concomitant]
     Indication: PROPHYLAXIS OF NAUSEA AND VOMITING
     Dosage: 1 TABLET, TID
     Route: 048
     Dates: start: 20160615, end: 20160621
  29. TYLENOL EXTENDED RELIEF CAPLETS [Concomitant]
     Active Substance: ACETAMINOPHEN
     Indication: PAIN
     Dosage: 2 TABLETS, QD
     Route: 048
     Dates: start: 20160610, end: 20160623
  30. EMEND (FOSAPREPITANT DIMEGLUMINE) [Suspect]
     Active Substance: FOSAPREPITANT DIMEGLUMINE
     Indication: PROPHYLAXIS OF NAUSEA AND VOMITING
     Dosage: 150 MG, ONCE
     Route: 042
     Dates: start: 20160609, end: 20160609
  31. VINORELBINE TARTRATE. [Concomitant]
     Active Substance: VINORELBINE TARTRATE
     Indication: LUNG NEOPLASM MALIGNANT
     Dosage: 30.5 MG, ONCE, CYCLE 2; STRENGTH: 50MG/5ML
     Route: 042
     Dates: start: 20160609, end: 20160609
  32. CISPLATIN. [Concomitant]
     Active Substance: CISPLATIN
     Indication: LUNG NEOPLASM MALIGNANT
     Dosage: 91.6 MG, ONCE, CYCLE 2; STRENGTH: 50MG/5ML;
     Route: 042
     Dates: start: 20160609, end: 20160609
  33. CISPLATIN. [Concomitant]
     Active Substance: CISPLATIN
     Dosage: 92.2 MG, ONCE, CYCLE 3; STRENGTH: 50MG/5ML;
     Route: 042
     Dates: start: 20160629, end: 20160629
  34. DEXAMETHASONE SODIUM PHOSPHATE. [Concomitant]
     Active Substance: DEXAMETHASONE SODIUM PHOSPHATE
     Dosage: 12 MG, ONCE; STRENGHT: 5MG/ML
     Route: 042
     Dates: start: 20160629, end: 20160629
  35. DEXAMETHASONE SODIUM PHOSPHATE. [Concomitant]
     Active Substance: DEXAMETHASONE SODIUM PHOSPHATE
     Dosage: 8 MG, ONCE; STRENGHT: 5MG/ML
     Route: 042
     Dates: start: 20160808, end: 20160808
  36. ALOXI [Concomitant]
     Active Substance: PALONOSETRON HYDROCHLORIDE
     Indication: PREMEDICATION
     Dosage: 5 ML, ONCE
     Route: 042
     Dates: start: 20160609, end: 20160609
  37. SYLCON [Concomitant]
     Indication: DYSPEPSIA
     Dosage: 1 TABLET, TID
     Route: 048
     Dates: start: 2016
  38. CIMETIDINE [Concomitant]
     Active Substance: CIMETIDINE
     Dosage: 1 AMPULE, ONCE; STRENGTH: 200MG/2ML
     Route: 042
     Dates: start: 20160802, end: 20160802
  39. ALANINE (+) ARGININE (+) CYSTEINE HYDROCHLORIDE (+) GLYCINE (+) HISTID [Concomitant]
     Indication: ASTHENIA
     Dosage: 1 BLT, QD
     Route: 042
     Dates: start: 20160609, end: 20160610
  40. MEGACE [Concomitant]
     Active Substance: MEGESTROL ACETATE
     Indication: DECREASED APPETITE
     Dosage: 1 PK, QD
     Route: 048
     Dates: start: 20160609
  41. CIMET [Concomitant]
     Dosage: 1 TABLET, QD
     Route: 048
     Dates: start: 20160803, end: 20160804
  42. DEXAMETHASONE SODIUM PHOSPHATE. [Concomitant]
     Active Substance: DEXAMETHASONE SODIUM PHOSPHATE
     Indication: PREMEDICATION
     Dosage: 12 MG, ONCE; STRENGHT: 5MG/ML
     Route: 042
     Dates: start: 20160609, end: 20160609
  43. DEXAMETHASONE SODIUM PHOSPHATE. [Concomitant]
     Active Substance: DEXAMETHASONE SODIUM PHOSPHATE
     Indication: CHEMOTHERAPY
     Dosage: 8 MG, ONCE; STRENGHT: 5MG/ML
     Route: 042
     Dates: start: 20160610, end: 20160610
  44. DEXAMETHASONE. [Concomitant]
     Active Substance: DEXAMETHASONE
     Dosage: 8 MG, BID
     Route: 048
     Dates: start: 20160803, end: 20160804
  45. CIMETIDINE [Concomitant]
     Active Substance: CIMETIDINE
     Indication: PREMEDICATION
     Dosage: 1 AMPULE, QD; STRENGTH: 200MG/2ML
     Route: 042
     Dates: start: 20160609, end: 20160610
  46. NEBILET [Concomitant]
     Active Substance: NEBIVOLOL
     Indication: HYPERTENSION
     Dosage: 1 TABLET, QD
     Route: 048
  47. CIMET [Concomitant]
     Indication: PROPHYLAXIS
     Dosage: 1 TABLET, QD
     Route: 048
     Dates: start: 20160611, end: 20160612

REACTIONS (4)
  - Oedema peripheral [Recovered/Resolved]
  - Fall [Recovered/Resolved]
  - Pericardial effusion [Fatal]
  - Dizziness [Recovering/Resolving]

NARRATIVE: CASE EVENT DATE: 20160622
